FAERS Safety Report 6509781-4 (Version None)
Quarter: 2009Q4

REPORT INFORMATION
  Report Type: 
  Country: None (occurrence: None)
  Receive Date: 20091222
  Receipt Date: 20091211
  Transmission Date: 20100525
  Serious: Yes (Hospitalization)
  Sender: FDA-Public Use
  Company Number: US-AMGEN-QUU379835

PATIENT
  Sex: Male

DRUGS (1)
  1. ENBREL [Suspect]
     Indication: RHEUMATOID ARTHRITIS
     Dates: start: 20080501

REACTIONS (5)
  - DEHYDRATION [None]
  - NON-HODGKIN'S LYMPHOMA STAGE III [None]
  - PYREXIA [None]
  - SYNCOPE [None]
  - TRANSFUSION [None]
